FAERS Safety Report 23074373 (Version 1)
Quarter: 2023Q4

REPORT INFORMATION
  Report Type: Report from Study
  Country: US (occurrence: US)
  Receive Date: 20231017
  Receipt Date: 20231017
  Transmission Date: 20240110
  Serious: Yes (Hospitalization)
  Sender: FDA-Public Use
  Company Number: US-TEVA-2023-US-2935212

PATIENT

DRUGS (5)
  1. PROPRANOLOL [Suspect]
     Active Substance: PROPRANOLOL HYDROCHLORIDE
     Indication: Tachycardia foetal
     Dosage: 1.72 MG/KG DAILY; TOTAL DAILY DOSE 1.7 MG/KG/DAY
     Route: 048
  2. DIGOXIN [Suspect]
     Active Substance: DIGOXIN
     Indication: Tachycardia foetal
     Route: 065
  3. DEXTROSE [Concomitant]
     Active Substance: DEXTROSE\DEXTROSE MONOHYDRATE
     Indication: Hypoglycaemia neonatal
     Dosage: INITIAL DOSE NOT STATED
     Route: 041
  4. DEXTROSE [Concomitant]
     Active Substance: DEXTROSE\DEXTROSE MONOHYDRATE
     Dosage: INFUSION RATE OF 12 MG/KG/MINUTE, FOR NEONATAL HYPOGLYCAEMIA
     Route: 041
  5. FLECAINIDE [Concomitant]
     Active Substance: FLECAINIDE
     Indication: Hypoglycaemia neonatal
     Route: 065

REACTIONS (2)
  - Hypoglycaemia neonatal [Unknown]
  - Drug ineffective [Unknown]
